FAERS Safety Report 8805689 (Version 1)
Quarter: 2012Q4

REPORT INFORMATION
  Report Type: Report from Study
  Country: US (occurrence: US)
  Receive Date: 20120924
  Receipt Date: 20120924
  Transmission Date: 20130627
  Serious: Yes (Hospitalization)
  Sender: FDA-Public Use
  Company Number: US-ROCHE-1125502

PATIENT
  Age: 55 Year
  Sex: Male
  Weight: 104 kg

DRUGS (3)
  1. CELLCEPT [Suspect]
     Indication: IMMUNOSUPPRESSION
     Route: 048
     Dates: start: 20100304
  2. TOFACITINIB [Suspect]
     Indication: IMMUNOSUPPRESSION
     Route: 048
     Dates: start: 20111102
  3. PREDNISOLONE [Suspect]
     Indication: IMMUNOSUPPRESSION
     Route: 048
     Dates: start: 20111102

REACTIONS (2)
  - Pneumonia [Recovering/Resolving]
  - Atrioventricular block [Recovered/Resolved]
